FAERS Safety Report 23686559 (Version 1)
Quarter: 2024Q1

REPORT INFORMATION
  Report Type: Spontaneous
  Country: US (occurrence: None)
  Receive Date: 20240328
  Receipt Date: 20240328
  Transmission Date: 20240410
  Serious: Yes (Disabling, Other)
  Sender: FDA-Public Use
  Company Number: None

PATIENT
  Sex: Female

DRUGS (2)
  1. CIPROFLOXACIN [Suspect]
     Active Substance: CIPROFLOXACIN
     Indication: Urinary tract infection
     Dosage: OTHER QUANTITY : 1 TABLET(S);?FREQUENCY : TWICE A DAY;?
     Route: 048
     Dates: start: 20240309, end: 20240311
  2. VITAMINS [Concomitant]
     Active Substance: VITAMINS

REACTIONS (9)
  - Abdominal pain [None]
  - Haematochezia [None]
  - Therapy cessation [None]
  - Palpitations [None]
  - Neuralgia [None]
  - Pain in extremity [None]
  - Burning sensation [None]
  - Insomnia [None]
  - Anxiety [None]

NARRATIVE: CASE EVENT DATE: 20240310
